FAERS Safety Report 15277162 (Version 1)
Quarter: 2018Q3

REPORT INFORMATION
  Report Type: Report from Study
  Country: US (occurrence: US)
  Receive Date: 20180814
  Receipt Date: 20180814
  Transmission Date: 20181010
  Serious: Yes (Other)
  Sender: FDA-Public Use
  Company Number: US-JAZZ-2017-US-007434

PATIENT
  Sex: Female

DRUGS (25)
  1. LAMISIL [Concomitant]
     Active Substance: TERBINAFINE HYDROCHLORIDE
  2. PIPER METHYSTICUM [Concomitant]
  3. MENOPUR [Concomitant]
     Active Substance: FOLLITROPIN\LUTEINIZING HORMONE
  4. SINGULAIR [Concomitant]
     Active Substance: MONTELUKAST SODIUM
  5. TOLNAFTATE. [Concomitant]
     Active Substance: TOLNAFTATE
  6. METFORMIN HCL [Concomitant]
     Active Substance: METFORMIN HYDROCHLORIDE
  7. ZYRTEC?D [Concomitant]
     Active Substance: CETIRIZINE HYDROCHLORIDE\PSEUDOEPHEDRINE HYDROCHLORIDE
  8. FISH OIL W/TOCOPHEROL [Concomitant]
  9. XYREM [Suspect]
     Active Substance: SODIUM OXYBATE
     Indication: CATAPLEXY
     Dosage: DOSE ADJUSTMENT
     Route: 048
     Dates: start: 200706, end: 201205
  10. DIFLUCAN [Concomitant]
     Active Substance: FLUCONAZOLE
  11. COQ 10 [Concomitant]
     Active Substance: UBIDECARENONE
  12. CALCIUM AND VIT D [Concomitant]
     Active Substance: CALCIUM\VITAMIN D
  13. GLICLAZIDE [Concomitant]
     Active Substance: GLICLAZIDE
  14. IBUPROFEN. [Concomitant]
     Active Substance: IBUPROFEN
  15. NUVIGIL [Concomitant]
     Active Substance: ARMODAFINIL
  16. MAGNESIUM CITRAT [Concomitant]
  17. XYREM [Suspect]
     Active Substance: SODIUM OXYBATE
     Indication: NARCOLEPSY
     Dosage: 2.25 G, BID
     Route: 048
     Dates: start: 200703, end: 200706
  18. MELATONIN [Concomitant]
     Active Substance: MELATONIN
  19. CHORIONIC GONADOTROPHIN [Concomitant]
     Active Substance: CHORIOGONADOTROPIN ALFA
  20. GONAL F RFF [Concomitant]
  21. NASACORT [Concomitant]
     Active Substance: TRIAMCINOLONE ACETONIDE
  22. SALBUTAMOL [Concomitant]
     Active Substance: ALBUTEROL
  23. XYREM [Suspect]
     Active Substance: SODIUM OXYBATE
     Dosage: 4.5 G, BID
     Route: 048
     Dates: start: 201210, end: 2016
  24. CABERGOLINE. [Concomitant]
     Active Substance: CABERGOLINE
  25. CYANOCOBALAMIN. [Concomitant]
     Active Substance: CYANOCOBALAMIN

REACTIONS (12)
  - Depression [Recovered/Resolved]
  - Vitamin D decreased [Unknown]
  - Tachyphrenia [Unknown]
  - Pre-existing condition improved [Unknown]
  - Extra dose administered [Unknown]
  - Drug ineffective [Unknown]
  - Bronchitis [Unknown]
  - Drug resistance [Unknown]
  - Hepatic steatosis [Not Recovered/Not Resolved]
  - Pain [Unknown]
  - Therapeutic response unexpected [Unknown]
  - Sinus headache [Unknown]
